FAERS Safety Report 5350814-9 (Version None)
Quarter: 2007Q2

REPORT INFORMATION
  Report Type: 
  Country: None (occurrence: None)
  Receive Date: 20070608
  Receipt Date: 20070529
  Transmission Date: 20071010
  Serious: Yes (Other)
  Sender: FDA-Public Use
  Company Number: BR-JNJFOC-20070600949

PATIENT
  Age: 52 Year
  Sex: Female
  Weight: 80 kg

DRUGS (4)
  1. ACETAMINOPHEN W/ CODEINE [Suspect]
     Indication: PAIN IN EXTREMITY
     Route: 048
  2. ACETAMINOPHEN W/ CODEINE [Suspect]
     Route: 048
  3. ACETAMINOPHEN W/ CODEINE [Suspect]
     Indication: CHEST PAIN
     Dosage: 500MG AND 30MG RESPECTIVELY
     Route: 048
  4. ATORVASTATIN CALCIUM [Concomitant]
     Route: 048

REACTIONS (5)
  - CHEST PAIN [None]
  - HYPOTENSION [None]
  - NAUSEA [None]
  - TACHYCARDIA [None]
  - VOMITING [None]
